FAERS Safety Report 20849564 (Version 1)
Quarter: 2022Q2

REPORT INFORMATION
  Report Type: Spontaneous
  Country: GB (occurrence: GB)
  Receive Date: 20220519
  Receipt Date: 20220519
  Transmission Date: 20220721
  Serious: Yes (Hospitalization)
  Sender: FDA-Public Use
  Company Number: GB-VERTEX PHARMACEUTICALS-2022-007468

PATIENT
  Sex: Male

DRUGS (1)
  1. ORKAMBI [Suspect]
     Active Substance: IVACAFTOR\LUMACAFTOR
     Indication: Cystic fibrosis
     Dosage: 1 PACKET GRANULES (150 MG LUMACAFTOR/188 MG IVACAFTOR) BID
     Route: 048

REACTIONS (3)
  - Gastroenteritis [Unknown]
  - Lower respiratory tract infection [Unknown]
  - Norovirus infection [Unknown]
